FAERS Safety Report 5781762-8 (Version None)
Quarter: 2008Q2

REPORT INFORMATION
  Report Type: 
  Country: None (occurrence: None)
  Receive Date: 20080623
  Receipt Date: 20071019
  Transmission Date: 20081010
  Serious: No
  Sender: FDA-Public Use
  Company Number: US-ASTRAZENECA-2007UW24403

PATIENT
  Age: 62 Year
  Sex: Male

DRUGS (13)
  1. RHINOCORT [Suspect]
     Indication: SINUS DISORDER
     Route: 045
  2. METHOTREXATE [Concomitant]
  3. PREDNISONE TAB [Concomitant]
  4. METFORMIN [Concomitant]
  5. HYDROCODONE [Concomitant]
  6. AVAPRO [Concomitant]
  7. LUPRON [Concomitant]
  8. ASPIRIN [Concomitant]
  9. CRESTOR [Concomitant]
     Route: 048
  10. METAMUCIL [Concomitant]
  11. NYSTATIN [Concomitant]
  12. FOLIC ACID [Concomitant]
  13. SYROSULFATE [Concomitant]

REACTIONS (1)
  - PAIN IN EXTREMITY [None]
